FAERS Safety Report 4790144-7 (Version None)
Quarter: 2005Q4

REPORT INFORMATION
  Report Type: 
  Country: None (occurrence: None)
  Receive Date: 20051006
  Receipt Date: 20041102
  Transmission Date: 20060501
  Serious: Yes (Hospitalization, Disabling)
  Sender: FDA-Public Use
  Company Number: US-ROCHE-385239

PATIENT
  Age: 20 Year
  Sex: Female

DRUGS (2)
  1. ACCUTANE [Suspect]
     Indication: ACNE
     Route: 048
     Dates: start: 19980615, end: 19981015
  2. BIRTH CONTROL PILLS NOS [Concomitant]
     Dosage: FREQENCY REPORTED AS EVERY DAY
     Route: 048

REACTIONS (40)
  - ACNE [None]
  - ACROCHORDON [None]
  - ANOREXIA [None]
  - ARTHRALGIA [None]
  - BREAST MASS [None]
  - CAESAREAN SECTION [None]
  - CERVIX CARCINOMA STAGE 0 [None]
  - COLITIS [None]
  - COLITIS ULCERATIVE [None]
  - CROHN'S DISEASE [None]
  - DEPRESSION [None]
  - DERMAL CYST [None]
  - DYSPEPSIA [None]
  - EAR INFECTION [None]
  - ENTEROCOLITIS INFECTIOUS [None]
  - GASTROINTESTINAL DISORDER [None]
  - HEADACHE [None]
  - HEPATIC STEATOSIS [None]
  - HERPES VIRUS INFECTION [None]
  - HYDRONEPHROSIS [None]
  - HYPERHIDROSIS [None]
  - IMPAIRED HEALING [None]
  - INFLAMMATORY BOWEL DISEASE [None]
  - INTESTINAL HAEMORRHAGE [None]
  - IRON DEFICIENCY ANAEMIA [None]
  - MULTI-ORGAN DISORDER [None]
  - OEDEMA MUCOSAL [None]
  - PELVIC INFECTION [None]
  - PREGNANCY [None]
  - PROCTALGIA [None]
  - RECTAL HAEMORRHAGE [None]
  - RENAL CYST [None]
  - SLEEP DISORDER [None]
  - SMALL INTESTINAL OBSTRUCTION [None]
  - SUICIDAL IDEATION [None]
  - URINARY TRACT INFECTION [None]
  - VAGINAL HAEMORRHAGE [None]
  - VISUAL DISTURBANCE [None]
  - WEIGHT DECREASED [None]
  - WOUND INFECTION [None]
